FAERS Safety Report 19316918 (Version 3)
Quarter: 2024Q2

REPORT INFORMATION
  Report Type: Report from Study
  Country: US (occurrence: US)
  Receive Date: 20210527
  Receipt Date: 20240513
  Transmission Date: 20240716
  Serious: No
  Sender: FDA-Public Use
  Company Number: US-KYOWAKIRIN-2021BKK008110

PATIENT

DRUGS (10)
  1. BUROSUMAB [Suspect]
     Active Substance: BUROSUMAB
     Indication: Hereditary hypophosphataemic rickets
     Dosage: 30 MG, EVERY TWO WEEKS
     Route: 058
  2. BUROSUMAB [Suspect]
     Active Substance: BUROSUMAB
     Indication: Hereditary hypophosphataemic rickets
     Dosage: UNK
     Route: 058
     Dates: start: 20180927
  3. BUROSUMAB [Suspect]
     Active Substance: BUROSUMAB
     Dosage: 40 MG, EVERY 14 DAYS
     Route: 058
  4. BUROSUMAB [Suspect]
     Active Substance: BUROSUMAB
     Dosage: 40 MG, EVERY 14 DAYS
     Route: 058
  5. BUROSUMAB [Suspect]
     Active Substance: BUROSUMAB
     Dosage: 80 MG, EVERY 14 DAYS
     Route: 058
     Dates: start: 20231230
  6. BUROSUMAB [Suspect]
     Active Substance: BUROSUMAB
     Dosage: 80 MG, EVERY 14 DAYS
     Route: 058
     Dates: start: 20240308
  7. BUROSUMAB [Suspect]
     Active Substance: BUROSUMAB
     Indication: Hereditary hypophosphataemic rickets
     Dosage: 60 MG, 1X/2 WEEKS
     Route: 058
     Dates: start: 20180927
  8. BUROSUMAB [Suspect]
     Active Substance: BUROSUMAB
     Dosage: 80 MG, EVERY 14 DAYS
     Route: 058
     Dates: start: 20231230
  9. BUROSUMAB [Suspect]
     Active Substance: BUROSUMAB
     Dosage: 80 MG, EVERY 14 DAYS
     Route: 058
     Dates: start: 20240308
  10. CRYSVITA [Concomitant]
     Active Substance: BUROSUMAB-TWZA
     Indication: Product used for unknown indication
     Dosage: UNK
     Route: 065

REACTIONS (2)
  - Pain [Not Recovered/Not Resolved]
  - Therapy interrupted [Unknown]

NARRATIVE: CASE EVENT DATE: 20240504
